FAERS Safety Report 15901057 (Version 1)
Quarter: 2019Q1

REPORT INFORMATION
  Report Type: Report from Study
  Country: CA (occurrence: CA)
  Receive Date: 20190201
  Receipt Date: 20190201
  Transmission Date: 20190417
  Serious: Yes (Death)
  Sender: FDA-Public Use
  Company Number: CA-TAIHO ONCOLOGY  INC-EU-2018-01737

PATIENT
  Age: 78 Year
  Sex: Male
  Weight: 57.2 kg

DRUGS (5)
  1. CANDESARTAN. [Concomitant]
     Active Substance: CANDESARTAN
  2. LONSURF [Suspect]
     Active Substance: TIPIRACIL HYDROCHLORIDE\TRIFLURIDINE
     Indication: COLORECTAL CANCER METASTATIC
     Dosage: CYCLE 1 ENDED ON 25/JUN/2018?CYCLE 2 STARTED ON 26/JUN/2018 AND ENDED ON 23/JUL/2018?CYCLE 3 STARTED
     Route: 048
     Dates: start: 20180528, end: 201809
  3. NIFEDIPINE. [Concomitant]
     Active Substance: NIFEDIPINE
  4. ASA [Concomitant]
     Active Substance: ASPIRIN
  5. RAPAFLO [Concomitant]
     Active Substance: SILODOSIN

REACTIONS (2)
  - Death [Fatal]
  - Disease progression [Not Recovered/Not Resolved]

NARRATIVE: CASE EVENT DATE: 20180910
